FAERS Safety Report 4607583-7 (Version None)
Quarter: 2005Q1

REPORT INFORMATION
  Report Type: 
  Country: None (occurrence: None)
  Receive Date: 20050309
  Receipt Date: 20050221
  Transmission Date: 20050727
  Serious: Yes (Other)
  Sender: FDA-Public Use
  Company Number: GS050216736

PATIENT
  Sex: Female

DRUGS (9)
  1. YENTREVE (DULOXETINE HYDROCHLORIDE) [Suspect]
     Indication: STRESS INCONTINENCE
     Dosage: 20 MG AT BEDTIME
     Dates: start: 20050219, end: 20050221
  2. CYCLOSPORINE [Concomitant]
  3. DOXAZOSIN [Concomitant]
  4. SIMVASTATIN ^ORIFARM^ (SIMVASTATIN RATIOPHARM) [Concomitant]
  5. LANSOPRAZOLE [Concomitant]
  6. IREBESARTAN [Concomitant]
  7. ENALAPRIL [Concomitant]
  8. FRUSEMIDE [Concomitant]
  9. ASPIRIN [Concomitant]

REACTIONS (2)
  - BLOOD PRESSURE INCREASED [None]
  - HEADACHE [None]
